FAERS Safety Report 23693681 (Version 1)
Quarter: 2024Q1

REPORT INFORMATION
  Report Type: Spontaneous
  Country: US (occurrence: None)
  Receive Date: 20240331
  Receipt Date: 20240331
  Transmission Date: 20240410
  Serious: Yes (Disabling)
  Sender: FDA-Public Use
  Company Number: None

PATIENT
  Age: 73 Year
  Sex: Female
  Weight: 86.4 kg

DRUGS (11)
  1. PRADAXA [Suspect]
     Active Substance: DABIGATRAN ETEXILATE MESYLATE
     Indication: Atrial fibrillation
     Dosage: 1 CPSULE TWICE A DAY ORAL
     Route: 048
  2. Verio one touch glucose monitor [Concomitant]
  3. ATENOLOL [Concomitant]
  4. LOSARTAN [Concomitant]
     Active Substance: LOSARTAN
  5. ATORVASTATIN [Concomitant]
  6. HYDROCHLOROTHIAZIDE [Concomitant]
  7. POTASSIUM CHLORIDE [Concomitant]
  8. TERAZOSIN [Concomitant]
  9. aspirin [Concomitant]
  10. cranberry extract [Concomitant]
  11. centrum silver for women [Concomitant]

REACTIONS (7)
  - Abdominal pain upper [None]
  - Vomiting [None]
  - Dizziness [None]
  - Gait disturbance [None]
  - Feeling abnormal [None]
  - Lethargy [None]
  - Hypersomnia [None]

NARRATIVE: CASE EVENT DATE: 20240226
